FAERS Safety Report 10632371 (Version 1)
Quarter: 2014Q4

REPORT INFORMATION
  Report Type: Spontaneous
  Country: US (occurrence: US)
  Receive Date: 20141205
  Receipt Date: 20141205
  Transmission Date: 20150529
  Serious: No
  Sender: FDA-Public Use
  Company Number: US-BRISTOL-MYERS SQUIBB COMPANY-21238878

PATIENT
  Age: 39 Year
  Sex: Female
  Weight: 82.08 kg

DRUGS (3)
  1. IRON [Concomitant]
     Active Substance: IRON
  2. TYLENOL [Concomitant]
     Active Substance: ACETAMINOPHEN
  3. ORENCIA [Suspect]
     Active Substance: ABATACEPT
     Indication: RHEUMATOID ARTHRITIS
     Dosage: POWDER FOR SOLUTION?ONGOING
     Route: 058
     Dates: start: 201401

REACTIONS (1)
  - Injection site pruritus [Unknown]

NARRATIVE: CASE EVENT DATE: 2014
